FAERS Safety Report 6737364-X (Version None)
Quarter: 2010Q2

REPORT INFORMATION
  Report Type: 
  Country: None (occurrence: None)
  Receive Date: 20100524
  Receipt Date: 20100513
  Transmission Date: 20101027
  Serious: Yes (Hospitalization, Other)
  Sender: FDA-Public Use
  Company Number: JP-JNJFOC-20100500032

PATIENT
  Sex: Male
  Weight: 24.49 kg

DRUGS (37)
  1. DUROTEP MT [Suspect]
     Indication: CANCER PAIN
     Route: 062
  2. TS-1 [Suspect]
     Indication: DRUG USE FOR UNKNOWN INDICATION
     Route: 048
  3. TS-1 [Suspect]
     Indication: LUNG NEOPLASM MALIGNANT
     Route: 048
  4. TS-1 [Suspect]
     Route: 048
  5. MORPHINE HYDROCHLORIDE [Suspect]
     Indication: DRUG USE FOR UNKNOWN INDICATION
     Route: 058
  6. MORPHINE HYDROCHLORIDE [Suspect]
     Indication: CANCER PAIN
     Route: 058
  7. VOLTAREN [Concomitant]
     Indication: PAIN
     Route: 048
  8. VOLTAREN [Concomitant]
     Route: 048
  9. VOLTAREN [Concomitant]
     Indication: ANALGESIC THERAPY
     Route: 048
  10. VOLTAREN [Concomitant]
     Route: 048
  11. PARIET [Concomitant]
     Indication: PROPHYLAXIS
     Route: 048
  12. PROCHLORPERAZINE [Concomitant]
     Indication: PROPHYLAXIS OF NAUSEA AND VOMITING
     Route: 048
  13. PROCHLORPERAZINE [Concomitant]
     Route: 048
  14. PROCHLORPERAZINE [Concomitant]
     Route: 048
  15. PROCHLORPERAZINE [Concomitant]
     Route: 048
  16. PROCHLORPERAZINE [Concomitant]
     Indication: PROPHYLAXIS
     Route: 048
  17. PROCHLORPERAZINE [Concomitant]
     Route: 048
  18. MAGMITT [Concomitant]
     Indication: CONSTIPATION PROPHYLAXIS
     Route: 048
  19. MAGMITT [Concomitant]
     Route: 048
  20. MAGMITT [Concomitant]
     Indication: PROPHYLAXIS
     Route: 048
  21. MAGMITT [Concomitant]
     Route: 048
  22. MUCOSAL (AMBROXOL HYDROCHLORIDE) [Concomitant]
     Indication: PRODUCTIVE COUGH
     Route: 048
  23. MUCOSAL (AMBROXOL HYDROCHLORIDE) [Concomitant]
     Route: 048
  24. MUCOSAL (AMBROXOL HYDROCHLORIDE) [Concomitant]
     Indication: DRUG USE FOR UNKNOWN INDICATION
     Route: 048
  25. MUCOSAL (AMBROXOL HYDROCHLORIDE) [Concomitant]
     Route: 048
  26. CEROCRAL [Concomitant]
     Indication: PAIN
     Route: 048
  27. CEROCRAL [Concomitant]
     Route: 048
  28. CEROCRAL [Concomitant]
     Indication: ANALGESIC THERAPY
     Route: 048
  29. CEROCRAL [Concomitant]
     Route: 048
  30. FAMOTIDINE [Concomitant]
     Indication: PROPHYLAXIS
     Route: 048
  31. FAMOTIDINE [Concomitant]
     Route: 048
  32. GASMOTIN [Concomitant]
     Indication: NAUSEA
     Route: 048
  33. GASMOTIN [Concomitant]
     Route: 048
  34. DRAMAMINE [Concomitant]
     Indication: NAUSEA
     Route: 048
  35. DRAMAMINE [Concomitant]
     Route: 048
  36. CALONAL [Concomitant]
     Indication: ANALGESIC THERAPY
     Route: 048
  37. NEUTROGIN [Concomitant]
     Indication: NEUTROPENIA
     Route: 058

REACTIONS (4)
  - EOSINOPHILIA [None]
  - NEUTROPENIA [None]
  - NEUTROPHILIA [None]
  - THROMBOCYTOPENIA [None]
